FAERS Safety Report 24214889 (Version 1)
Quarter: 2024Q3

REPORT INFORMATION
  Report Type: Spontaneous
  Country: CO (occurrence: CO)
  Receive Date: 20240815
  Receipt Date: 20240815
  Transmission Date: 20241017
  Serious: Yes (Hospitalization, Other)
  Sender: APELLIS PHARMACEUTICALS
  Company Number: CO-BIOVITRUM-2024-CO-010697

PATIENT

DRUGS (2)
  1. PEGCETACOPLAN [Suspect]
     Active Substance: PEGCETACOPLAN
     Indication: Paroxysmal nocturnal haemoglobinuria
     Dosage: 1080.000MG
     Route: 058
     Dates: start: 20240402, end: 20240709
  2. PEGCETACOPLAN [Suspect]
     Active Substance: PEGCETACOPLAN
     Dosage: 1080.000MG
     Route: 058
     Dates: start: 20240802

REACTIONS (4)
  - Haemoglobin decreased [Recovering/Resolving]
  - Haemolysis [Recovering/Resolving]
  - Product dose omission issue [Unknown]
  - Insurance issue [Unknown]

NARRATIVE: CASE EVENT DATE: 20240709
